FAERS Safety Report 5866870-5 (Version None)
Quarter: 2008Q3

REPORT INFORMATION
  Report Type: 
  Country: None (occurrence: None)
  Receive Date: 20080902
  Receipt Date: 20080819
  Transmission Date: 20090109
  Serious: Yes (Hospitalization)
  Sender: FDA-Public Use
  Company Number: US-BAYER-200831441NA

PATIENT
  Age: 83 Year
  Sex: Male
  Weight: 67 kg

DRUGS (5)
  1. FLUDARA [Suspect]
     Indication: CHRONIC LYMPHOCYTIC LEUKAEMIA
     Dosage: TOTAL DAILY DOSE: 44 MG
  2. RANITIDINE [Concomitant]
     Dosage: TOTAL DAILY DOSE: 300 MG
  3. LOVASTATIN [Concomitant]
     Dosage: TOTAL DAILY DOSE: 40 MG
  4. TERAZOSIN HCL [Concomitant]
     Dosage: TOTAL DAILY DOSE: 10 MG
  5. ALLOPURINOL [Concomitant]
     Indication: PROPHYLAXIS

REACTIONS (1)
  - PAIN OF SKIN [None]
